FAERS Safety Report 4485234-2 (Version None)
Quarter: 2004Q4

REPORT INFORMATION
  Report Type: 
  Country: None (occurrence: None)
  Receive Date: 20041026
  Receipt Date: 20040809
  Transmission Date: 20050328
  Serious: No
  Sender: FDA-Public Use
  Company Number: US-BRISTOL-MYERS SQUIBB COMPANY-12664819

PATIENT
  Age: 53 Year
  Sex: Male
  Weight: 107 kg

DRUGS (6)
  1. GLUCOPHAGE XR [Suspect]
     Indication: DIABETES MELLITUS NON-INSULIN-DEPENDENT
     Route: 048
     Dates: start: 20040601
  2. ASPIRIN [Concomitant]
  3. PLAVIX [Concomitant]
  4. LISINOPRIL [Concomitant]
  5. TOPROL-XL [Concomitant]
  6. LIPITOR [Concomitant]

REACTIONS (7)
  - ABDOMINAL SYMPTOM [None]
  - ABNORMAL FAECES [None]
  - ANXIETY [None]
  - DIARRHOEA [None]
  - DIZZINESS [None]
  - FATIGUE [None]
  - PERIPHERAL COLDNESS [None]
